FAERS Safety Report 19068599 (Version 1)
Quarter: 2021Q1

REPORT INFORMATION
  Report Type: Spontaneous
  Country: CN (occurrence: CN)
  Receive Date: 20210329
  Receipt Date: 20210329
  Transmission Date: 20210420
  Serious: Yes (Other)
  Sender: FDA-Public Use
  Company Number: NVSC2021CN066181

PATIENT
  Age: 24 Year
  Sex: Female
  Weight: 55 kg

DRUGS (1)
  1. EXJADE [Suspect]
     Active Substance: DEFERASIROX
     Indication: END STAGE RENAL DISEASE
     Dosage: 1000 MG, QD
     Route: 048
     Dates: start: 20210226, end: 20210314

REACTIONS (1)
  - Liver injury [Recovering/Resolving]

NARRATIVE: CASE EVENT DATE: 20210317
